FAERS Safety Report 14320137 (Version 1)
Quarter: 2017Q4

REPORT INFORMATION
  Report Type: Spontaneous
  Country: US (occurrence: US)
  Receive Date: 20171222
  Receipt Date: 20171222
  Transmission Date: 20180321
  Serious: Yes (Hospitalization)
  Sender: FDA-Public Use
  Company Number: None

PATIENT
  Age: 56 Year
  Sex: Female

DRUGS (1)
  1. STELARA [Suspect]
     Active Substance: USTEKINUMAB
     Indication: PRODUCT USED FOR UNKNOWN INDICATION
     Dosage: 90 MG Q 6 WEEKS SC
     Route: 058
     Dates: start: 20170922

REACTIONS (3)
  - Dehydration [None]
  - Arthralgia [None]
  - Diarrhoea [None]

NARRATIVE: CASE EVENT DATE: 20171120
